FAERS Safety Report 6684269-9 (Version None)
Quarter: 2010Q2

REPORT INFORMATION
  Report Type: 
  Country: None (occurrence: None)
  Receive Date: 20100416
  Receipt Date: 20100407
  Transmission Date: 20101027
  Serious: Yes (Hospitalization)
  Sender: FDA-Public Use
  Company Number: US-JNJFOC-20100403262

PATIENT
  Sex: Male
  Weight: 44.45 kg

DRUGS (8)
  1. FENTANYL CITRATE [Suspect]
     Indication: PAIN
     Dosage: 100 UG TWO EVERY 72 HOURS
     Route: 062
  2. FENTANYL CITRATE [Suspect]
     Route: 062
  3. FENTANYL CITRATE [Suspect]
     Route: 062
  4. VALIUM [Concomitant]
     Indication: ANXIETY
     Route: 048
  5. DILAUDID [Concomitant]
     Indication: BREAKTHROUGH PAIN
     Dosage: EVERY 3-4 HOURS AS NEEDED
     Route: 048
  6. NEXIUM [Concomitant]
     Dosage: ONCE IN MORNING
     Route: 048
  7. VIOKASE [Concomitant]
     Indication: DYSPEPSIA
     Dosage: ONE BEFORE EACH MEAL
     Route: 048
  8. NPH INSULIN [Concomitant]
     Route: 058

REACTIONS (7)
  - DECREASED APPETITE [None]
  - DEVICE RELATED INFECTION [None]
  - DRUG ADMINISTERED AT INAPPROPRIATE SITE [None]
  - PRODUCT ADHESION ISSUE [None]
  - VOMITING [None]
  - WEIGHT DECREASED [None]
  - WRONG TECHNIQUE IN DRUG USAGE PROCESS [None]
